FAERS Safety Report 20461726 (Version 1)
Quarter: 2022Q1

REPORT INFORMATION
  Report Type: Spontaneous
  Country: US (occurrence: None)
  Receive Date: 20220211
  Receipt Date: 20220211
  Transmission Date: 20220424
  Serious: Yes (Hospitalization)
  Sender: FDA-Public Use
  Company Number: None

PATIENT
  Sex: Male

DRUGS (10)
  1. ALECENSA [Suspect]
     Active Substance: ALECTINIB HYDROCHLORIDE
     Indication: Lung neoplasm malignant
     Dosage: FREQUENCY : TWICE A DAY;?
     Route: 048
     Dates: start: 20211012
  2. ALECENSA CAP [Concomitant]
  3. CHLORTHALID TAB [Concomitant]
  4. METFORMIN TAB [Concomitant]
  5. MUCINEX TAB ER [Concomitant]
  6. PROCHLORPER TAB [Concomitant]
  7. SIMVASTATIN [Concomitant]
  8. TRELEGY AER ELLIPTA [Concomitant]
  9. VITAMIN D CAP [Concomitant]
  10. WARFARIN TAB [Concomitant]

REACTIONS (2)
  - COVID-19 [None]
  - Therapy interrupted [None]
